FAERS Safety Report 11962344 (Version 1)
Quarter: 2016Q1

REPORT INFORMATION
  Report Type: Spontaneous
  Country: US (occurrence: US)
  Receive Date: 20160126
  Receipt Date: 20160126
  Transmission Date: 20160526
  Serious: Yes (Hospitalization, Other)
  Sender: FDA-Public Use
  Company Number: US-ACTAVIS-2016-01266

PATIENT
  Age: 59 Year
  Sex: Female

DRUGS (4)
  1. ACETAZOLAMIDE (WATSON LABORATORIES) [Suspect]
     Active Substance: ACETAZOLAMIDE
     Indication: OPEN ANGLE GLAUCOMA
     Dosage: 50 MG, DAILY
     Route: 065
  2. LITHIUM CARBONATE (UNKNOWN) [Suspect]
     Active Substance: LITHIUM CARBONATE
     Dosage: 1500 MG, DAILY
     Route: 065
  3. LITHIUM CARBONATE (UNKNOWN) [Suspect]
     Active Substance: LITHIUM CARBONATE
     Indication: BIPOLAR DISORDER
     Dosage: 900 MG, DAILY
     Route: 065
  4. PILOCARPINE. [Concomitant]
     Active Substance: PILOCARPINE
     Indication: OPEN ANGLE GLAUCOMA
     Dosage: DROPS
     Route: 047

REACTIONS (7)
  - Memory impairment [Recovered/Resolved]
  - Polydipsia [Recovered/Resolved]
  - Diarrhoea [Recovered/Resolved]
  - Deep vein thrombosis [Recovered/Resolved]
  - Hypersomnia [Recovered/Resolved]
  - Lethargy [Recovered/Resolved]
  - Toxicity to various agents [Recovered/Resolved]
